FAERS Safety Report 23776167 (Version 7)
Quarter: 2024Q3

REPORT INFORMATION
  Report Type: Report from Study
  Country: CA (occurrence: CA)
  Receive Date: 20240424
  Receipt Date: 20240829
  Transmission Date: 20241016
  Serious: Yes (Hospitalization, Other)
  Sender: CSL BEHRING
  Company Number: CA-BEH-2024168476

PATIENT
  Age: 68 Year
  Sex: Female
  Weight: 86 kg

DRUGS (34)
  1. HIZENTRA [Suspect]
     Active Substance: HUMAN IMMUNOGLOBULIN G
     Indication: Secondary immunodeficiency
     Dosage: 10 G, QW
     Route: 065
     Dates: start: 20240131
  2. HIZENTRA [Suspect]
     Active Substance: HUMAN IMMUNOGLOBULIN G
     Dosage: UNK, QW
     Route: 065
     Dates: start: 20240131
  3. HIZENTRA [Suspect]
     Active Substance: HUMAN IMMUNOGLOBULIN G
     Dosage: UNK
     Route: 065
     Dates: start: 20240206
  4. HIZENTRA [Suspect]
     Active Substance: HUMAN IMMUNOGLOBULIN G
     Dosage: UNK, QW
     Route: 065
     Dates: start: 20240206
  5. HIZENTRA [Suspect]
     Active Substance: HUMAN IMMUNOGLOBULIN G
     Dosage: UNK
     Route: 065
     Dates: start: 20240206
  6. HIZENTRA [Suspect]
     Active Substance: HUMAN IMMUNOGLOBULIN G
     Dosage: UNK
     Route: 065
     Dates: start: 20240206
  7. HIZENTRA [Suspect]
     Active Substance: HUMAN IMMUNOGLOBULIN G
     Dosage: UNK
     Route: 065
     Dates: start: 20240214
  8. HIZENTRA [Suspect]
     Active Substance: HUMAN IMMUNOGLOBULIN G
     Dosage: UNK
     Route: 065
     Dates: start: 20240221
  9. HIZENTRA [Suspect]
     Active Substance: HUMAN IMMUNOGLOBULIN G
     Dosage: UNK
     Route: 065
     Dates: start: 20240227
  10. HIZENTRA [Suspect]
     Active Substance: HUMAN IMMUNOGLOBULIN G
     Dosage: UNK
     Route: 065
     Dates: start: 20240306
  11. HIZENTRA [Suspect]
     Active Substance: HUMAN IMMUNOGLOBULIN G
     Dosage: UNK
     Route: 065
  12. HIZENTRA [Suspect]
     Active Substance: HUMAN IMMUNOGLOBULIN G
     Dosage: UNK
     Route: 065
  13. HIZENTRA [Suspect]
     Active Substance: HUMAN IMMUNOGLOBULIN G
     Dosage: UNK
     Route: 065
     Dates: start: 20240313
  14. HIZENTRA [Suspect]
     Active Substance: HUMAN IMMUNOGLOBULIN G
     Dosage: UNK, QW
     Route: 065
     Dates: start: 20240131
  15. HIZENTRA [Suspect]
     Active Substance: HUMAN IMMUNOGLOBULIN G
     Dosage: UNK
     Route: 065
     Dates: start: 20240319
  16. UNSPECIFIED INGREDIENT [Concomitant]
     Active Substance: UNSPECIFIED INGREDIENT
  17. VALACYCLOVIR [Concomitant]
     Active Substance: VALACYCLOVIR HYDROCHLORIDE
  18. XARELTO [Concomitant]
     Active Substance: RIVAROXABAN
  19. ZOPICLONE [Concomitant]
     Active Substance: ZOPICLONE
  20. PANTOPRAZOLE [Concomitant]
     Active Substance: PANTOPRAZOLE
  21. CHOLECALCIFEROL [Concomitant]
     Active Substance: CHOLECALCIFEROL
  22. BISOPROLOL [Concomitant]
     Active Substance: BISOPROLOL\BISOPROLOL FUMARATE
  23. ENTECAVIR [Concomitant]
     Active Substance: ENTECAVIR
  24. PREGABALIN [Concomitant]
     Active Substance: PREGABALIN
  25. HYDROMORPHONE [Concomitant]
     Active Substance: HYDROMORPHONE
  26. Elipta [Concomitant]
  27. METOCLOPRAMIDE [Concomitant]
     Active Substance: METOCLOPRAMIDE
  28. TYLENOL [Concomitant]
     Active Substance: ACETAMINOPHEN
     Dosage: 325 MG
  29. BIO CIPROFLOXACIN [Concomitant]
  30. FILGRASTIM [Concomitant]
     Active Substance: FILGRASTIM
  31. ALBUTEROL SULFATE [Concomitant]
     Active Substance: ALBUTEROL SULFATE
  32. FENTANYL [Concomitant]
     Active Substance: FENTANYL\FENTANYL CITRATE
  33. LENALIDOMIDE [Concomitant]
     Active Substance: LENALIDOMIDE
  34. POTASSIUM [Concomitant]
     Active Substance: POTASSIUM

REACTIONS (44)
  - Hospitalisation [Recovered/Resolved]
  - Post procedural complication [Unknown]
  - Therapy interrupted [Unknown]
  - Spinal operation [Unknown]
  - Pulmonary oedema [Unknown]
  - Pain [Unknown]
  - Pneumonia [Unknown]
  - Dyspnoea [Unknown]
  - Pulmonary oedema [Unknown]
  - Discouragement [Unknown]
  - Infusion site erythema [Unknown]
  - Infusion site oedema [Unknown]
  - Nervousness [Unknown]
  - Urinary tract infection [Recovering/Resolving]
  - Dysuria [Recovering/Resolving]
  - Abdominal pain lower [Recovering/Resolving]
  - Lacrimation increased [Unknown]
  - Scab [Unknown]
  - Back pain [Unknown]
  - Fear of injection [Unknown]
  - Inadequate aseptic technique in use of product [Unknown]
  - Memory impairment [Unknown]
  - Injection site pain [Unknown]
  - Injection site oedema [Unknown]
  - Injection site erythema [Unknown]
  - Angioplasty [Unknown]
  - Product use complaint [Unknown]
  - Injection site haemorrhage [Unknown]
  - Injection site erythema [Unknown]
  - Anxiety [Unknown]
  - Asthenia [Unknown]
  - Product preparation error [Unknown]
  - Anxiety [Unknown]
  - Abdominal distension [Unknown]
  - Bowel movement irregularity [Unknown]
  - Injection site erythema [Unknown]
  - Malaise [Unknown]
  - Body temperature increased [Unknown]
  - Chills [Unknown]
  - Fatigue [Unknown]
  - Refusal of treatment by patient [Unknown]
  - Asthenia [Unknown]
  - Anxiety [Unknown]
  - Dyspnoea [Unknown]

NARRATIVE: CASE EVENT DATE: 20240206
